FAERS Safety Report 25989140 (Version 1)
Quarter: 2025Q4

REPORT INFORMATION
  Report Type: Report from Study
  Country: CN (occurrence: CN)
  Receive Date: 20251103
  Receipt Date: 20251103
  Transmission Date: 20260117
  Serious: Yes (Hospitalization)
  Sender: ROCHE
  Company Number: CN-ROCHE-10000423122

PATIENT
  Age: 51 Year
  Sex: Female

DRUGS (1)
  1. SATRALIZUMAB [Suspect]
     Active Substance: SATRALIZUMAB
     Indication: Neuromyelitis optica spectrum disorder
     Dosage: ON 01-OCT-2025,SHE RECEIVED THE 21ST INJECTION OF SATRALIZUMAB.
     Route: 058
     Dates: start: 20240301

REACTIONS (3)
  - Hypercapnia [Recovering/Resolving]
  - Respiratory depression [Recovering/Resolving]
  - Pneumonia [Not Recovered/Not Resolved]

NARRATIVE: CASE EVENT DATE: 20251028
